FAERS Safety Report 9379338 (Version 1)
Quarter: 2013Q3

REPORT INFORMATION
  Report Type: Spontaneous
  Country: ES (occurrence: ES)
  Receive Date: 20130702
  Receipt Date: 20130702
  Transmission Date: 20140515
  Serious: Yes (Other)
  Sender: FDA-Public Use
  Company Number: ES-PFIZER INC-2013193714

PATIENT
  Age: 72 Year
  Sex: Female

DRUGS (1)
  1. CARBOPLATIN [Suspect]
     Indication: OVARIAN NEOPLASM
     Dosage: UNK
     Route: 042
     Dates: start: 20120704, end: 20120704

REACTIONS (6)
  - Rash [Recovered/Resolved]
  - Abdominal pain [Recovered/Resolved]
  - Flushing [Recovered/Resolved]
  - Pruritus [Recovered/Resolved]
  - Dyspnoea [Recovered/Resolved]
  - Tachycardia [Recovered/Resolved]
